FAERS Safety Report 17209816 (Version 1)
Quarter: 2019Q4

REPORT INFORMATION
  Report Type: Report from Study
  Country: US (occurrence: US)
  Receive Date: 20191227
  Receipt Date: 20191227
  Transmission Date: 20200122
  Serious: Yes (Life-Threatening, Disabling)
  Sender: FDA-Public Use
  Company Number: US-PFIZER INC-2019555651

PATIENT
  Age: 14 Year
  Sex: Male
  Weight: 51.8 kg

DRUGS (6)
  1. MERCAPTOPURINE. [Suspect]
     Active Substance: MERCAPTOPURINE
     Indication: B PRECURSOR TYPE ACUTE LEUKAEMIA
     Dosage: 75 MG, QD DAY 1-84 MC4
     Route: 048
     Dates: start: 20190917, end: 20191203
  2. PREDNISONE. [Suspect]
     Active Substance: PREDNISONE
     Indication: B PRECURSOR TYPE ACUTE LEUKAEMIA
     Dosage: 32.5 MG, BID DAY 1-5, 29-33
     Route: 048
     Dates: start: 20190917
  3. VINCRISTINE SULFATE. [Suspect]
     Active Substance: VINCRISTINE SULFATE
     Indication: B PRECURSOR TYPE ACUTE LEUKAEMIA
     Dosage: 2 MG, UNK
     Dates: start: 20190917
  4. INCB018424 [Suspect]
     Active Substance: RUXOLITINIB
     Indication: B PRECURSOR TYPE ACUTE LEUKAEMIA
     Dosage: 80 MG, BID
     Route: 048
     Dates: start: 20191022, end: 20191203
  5. METHOTREXATE. [Suspect]
     Active Substance: METHOTREXATE
     Indication: B PRECURSOR TYPE ACUTE LEUKAEMIA
     Dosage: 23.75 MG, MC4 DAY 8,15,22,29,36,43,50,57,64,71,78
     Route: 048
     Dates: start: 20190925, end: 20191203
  6. METHOTREXATE SODIUM. [Suspect]
     Active Substance: METHOTREXATE SODIUM
     Indication: B PRECURSOR TYPE ACUTE LEUKAEMIA
     Dosage: 15 MG, MC4 DAY 1
     Route: 037
     Dates: start: 20190917

REACTIONS (2)
  - Neutropenia [Recovering/Resolving]
  - Pyrexia [Recovering/Resolving]

NARRATIVE: CASE EVENT DATE: 20191203
